FAERS Safety Report 4667525-5 (Version None)
Quarter: 2005Q2

REPORT INFORMATION
  Report Type: 
  Country: None (occurrence: None)
  Receive Date: 20050519
  Receipt Date: 20050519
  Transmission Date: 20051028
  Serious: Yes (Life-Threatening)
  Sender: FDA-Public Use
  Company Number: None

PATIENT
  Age: 28 Year
  Sex: Female

DRUGS (1)
  1. LACTATED RINGER'S [Suspect]
     Indication: PREMATURE LABOUR
     Dosage: 1000 ML    INTRAVENOU
     Route: 042
     Dates: start: 20050425, end: 20050425

REACTIONS (3)
  - ANXIETY [None]
  - COUGH [None]
  - DYSPNOEA [None]
